FAERS Safety Report 7969065-4 (Version None)
Quarter: 2011Q4

REPORT INFORMATION
  Report Type: 
  Country: None (occurrence: None)
  Receive Date: 20111208
  Receipt Date: 20111125
  Transmission Date: 20120403
  Serious: Yes (Other)
  Sender: FDA-Public Use
  Company Number: 2011AP002843

PATIENT
  Age: 68 Year
  Sex: Female

DRUGS (1)
  1. ALENDRONATE SODIUM [Suspect]
     Indication: HIP FRACTURE

REACTIONS (3)
  - FRACTURE NONUNION [None]
  - FEMUR FRACTURE [None]
  - IMPAIRED HEALING [None]
